FAERS Safety Report 24367255 (Version 4)
Quarter: 2024Q4

REPORT INFORMATION
  Report Type: Spontaneous
  Country: US (occurrence: US)
  Receive Date: 20240926
  Receipt Date: 20241115
  Transmission Date: 20250115
  Serious: Yes (Other)
  Sender: AMGEN
  Company Number: US-AMGEN-USASP2024189229

PATIENT
  Age: 74 Year
  Sex: Female
  Weight: 76.7 kg

DRUGS (25)
  1. PROLIA [Suspect]
     Active Substance: DENOSUMAB
     Indication: Osteoporosis
     Dosage: 60 MILLIGRAM, Q6MO
     Route: 058
     Dates: start: 2021, end: 20231026
  2. PROLIA [Suspect]
     Active Substance: DENOSUMAB
     Indication: Osteoporosis postmenopausal
     Dosage: 60 MILLIGRAM, Q6MO
     Route: 058
     Dates: start: 20240801
  3. CALCIUM CITRATE\CHOLECALCIFEROL [Concomitant]
     Active Substance: CALCIUM CITRATE\CHOLECALCIFEROL
     Dosage: 4 TIMES A DAY
     Route: 048
  4. BENTYL [Concomitant]
     Active Substance: DICYCLOMINE HYDROCHLORIDE
     Dosage: 10 MILLIGRAM, EVERY 6 HOURS, AS NECESSARY
     Route: 048
     Dates: start: 20240411
  5. VITAMIN D2 [Concomitant]
     Active Substance: ERGOCALCIFEROL
     Dosage: 1.5 MILLIGRAM, QWK
     Route: 048
     Dates: end: 20240826
  6. NEXIUM [Concomitant]
     Active Substance: ESOMEPRAZOLE MAGNESIUM
     Dosage: 20 MILLIGRAM, QD (EVERY MORNING BEFORE BREAKFAST)
     Route: 048
  7. PEPCID [Concomitant]
     Active Substance: FAMOTIDINE
     Dosage: 40 MILLIGRAM, QD
     Route: 048
     Dates: start: 20210504, end: 20240719
  8. ZOFRAN [Concomitant]
     Active Substance: ONDANSETRON HYDROCHLORIDE
     Dosage: 4 MILLIGRAM, EVERY 6 HOURSE, AS NECESSARY
     Route: 048
     Dates: start: 20220226, end: 20240719
  9. GLYCOLAX [Concomitant]
     Active Substance: POLYETHYLENE GLYCOL 3350
     Dosage: UNK UNK, QOD
     Route: 048
     Dates: end: 20240719
  10. SYNTHROID [Concomitant]
     Active Substance: LEVOTHYROXINE SODIUM
     Dosage: 88 MICROGRAM, QD (EVERY MORNING ON AN EMPTY STOMACH)
     Route: 048
     Dates: start: 20230727, end: 20240719
  11. SYNTHROID [Concomitant]
     Active Substance: LEVOTHYROXINE SODIUM
     Dosage: 88 MICROGRAM, QD (EVERY MORNING ON AN EMPTY STOMACH)
     Route: 048
     Dates: start: 20240719
  12. VITAMIN D [Concomitant]
     Active Substance: VITAMIN D NOS
     Dosage: 25 MICROGRAM (1000 UT)
     Route: 048
  13. CELEBREX [Concomitant]
     Active Substance: CELECOXIB
     Dosage: 200 MILLIGRAM, BID
     Route: 065
  14. RELAFEN [Concomitant]
     Active Substance: NABUMETONE
     Route: 065
  15. OXYCODONE [Concomitant]
     Active Substance: OXYCODONE
     Route: 065
  16. BENADRYL [Concomitant]
     Active Substance: DIPHENHYDRAMINE HYDROCHLORIDE
     Indication: Insomnia
     Dosage: AT NIGHT
     Route: 065
  17. PHENAZOPYRIDINE HYDROCHLORIDE [Concomitant]
     Active Substance: PHENAZOPYRIDINE HYDROCHLORIDE
     Dosage: UNK
     Route: 048
     Dates: end: 20240826
  18. MEDROL [Concomitant]
     Active Substance: METHYLPREDNISOLONE
     Route: 065
  19. DILAUDID [Concomitant]
     Active Substance: HYDROMORPHONE HYDROCHLORIDE
     Dosage: 2 MILLIGRAM, EVERY 4 HOURS, AS NECESSARY
     Route: 048
  20. ATARAX [Concomitant]
     Active Substance: HYDROXYZINE HYDROCHLORIDE
     Dosage: 50 MILLIGRAM, EVERY 8 HOURS, AS NECESSARY
     Route: 048
  21. LYRICA [Concomitant]
     Active Substance: PREGABALIN
     Dosage: 75 MILLIGRAM, BID
     Route: 048
  22. RESTASIS [Concomitant]
     Active Substance: CYCLOSPORINE
     Dosage: 1 GTT DROPS IN BOTH EYES, BID
     Route: 031
  23. MIACALCIN [Concomitant]
     Active Substance: CALCITONIN SALMON
     Dosage: 1 SPRAY INTO ONLY ONE NOSTRIL DAILY
     Route: 045
  24. SYSTANE (HYPROMELLOSE 2910 (4000 MPA.S)) [Concomitant]
     Active Substance: HYPROMELLOSE 2910 (4000 MPA.S)
     Dosage: 1 GTT DROPS (IN BOTH EYES), AS NECESSARY
     Route: 031
  25. LEVOTHYROXINE [Concomitant]
     Active Substance: LEVOTHYROXINE
     Route: 065

REACTIONS (12)
  - Knee arthroplasty [Unknown]
  - Compression fracture [Unknown]
  - Blood urea increased [Unknown]
  - Blood glucose increased [Unknown]
  - Gait disturbance [Unknown]
  - Balance disorder [Unknown]
  - Spondylolisthesis [Unknown]
  - Muscle atrophy [Unknown]
  - Alanine aminotransferase increased [Unknown]
  - Back pain [Unknown]
  - Dyspepsia [Unknown]
  - Blood calcium decreased [Unknown]

NARRATIVE: CASE EVENT DATE: 20240223
